FAERS Safety Report 21977838 (Version 2)
Quarter: 2024Q4

REPORT INFORMATION
  Report Type: Spontaneous
  Country: IN (occurrence: IN)
  Receive Date: 20230210
  Receipt Date: 20241205
  Transmission Date: 20250115
  Serious: Yes (Hospitalization)
  Sender: PFIZER
  Company Number: IN-PFIZER INC-PV202300024399

PATIENT
  Age: 70 Year
  Sex: Female

DRUGS (1)
  1. CRIZOTINIB [Suspect]
     Active Substance: CRIZOTINIB
     Dosage: 250 MG, 2X/DAY
     Route: 048
     Dates: start: 20210308

REACTIONS (19)
  - Sepsis [Unknown]
  - Metabolic encephalopathy [Unknown]
  - Septic encephalopathy [Unknown]
  - Cachexia [Unknown]
  - Respiratory failure [Unknown]
  - Systemic candida [Unknown]
  - Diabetes mellitus [Unknown]
  - Hypothyroidism [Unknown]
  - General physical health deterioration [Unknown]
  - Pleural effusion [Unknown]
  - Deep vein thrombosis [Unknown]
  - Dyspnoea [Unknown]
  - Asthenia [Unknown]
  - Hypophagia [Unknown]
  - Fungal infection [Unknown]
  - Hypertension [Unknown]
  - Electrolyte imbalance [Unknown]
  - Ammonia decreased [Unknown]
  - Neoplasm progression [Unknown]

NARRATIVE: CASE EVENT DATE: 20221101
